FAERS Safety Report 9476052 (Version 1)
Quarter: 2013Q3

REPORT INFORMATION
  Report Type: Spontaneous
  Country: DE (occurrence: None)
  Receive Date: 20130821
  Receipt Date: 20130821
  Transmission Date: 20140515
  Serious: Yes (Other)
  Sender: FDA-Public Use
  Company Number: AUR-APL-2013-06864

PATIENT
  Sex: Male

DRUGS (1)
  1. LAMOTRIGINE (LAMOTRIGINE) [Suspect]
     Indication: EPILEPSY

REACTIONS (3)
  - Diarrhoea neonatal [None]
  - Faeces discoloured [None]
  - Exposure during breast feeding [None]
